FAERS Safety Report 8525753-2 (Version None)
Quarter: 2012Q3

REPORT INFORMATION
  Report Type: 
  Country: None (occurrence: None)
  Receive Date: 20120720
  Receipt Date: 20120710
  Transmission Date: 20120928
  Serious: Yes (Disabling, Other)
  Sender: FDA-Public Use
  Company Number: US-009507513-0805USA00683

PATIENT

DRUGS (7)
  1. FOSAMAX [Suspect]
     Indication: OSTEOPENIA
     Dosage: 70 MG, QW
     Route: 048
     Dates: start: 20001025, end: 20061021
  2. HORMONES (UNSPECIFIED) [Concomitant]
     Indication: HORMONE REPLACEMENT THERAPY
     Dates: start: 19980101
  3. THERAPY UNSPECIFIED [Concomitant]
     Indication: DIABETES MELLITUS
     Dates: start: 20000301
  4. LEVOXYL [Concomitant]
     Indication: HYPOTHYROIDISM
     Dates: start: 20000201, end: 20011101
  5. FOSAMAX [Suspect]
     Indication: DIABETES MELLITUS
     Dosage: 5 MG, QD
     Route: 048
     Dates: start: 20001016
  6. ZOCOR [Concomitant]
     Indication: BLOOD CHOLESTEROL INCREASED
     Dates: start: 20000201, end: 20011101
  7. AVAPRO [Concomitant]
     Indication: HYPERTENSION
     Dates: start: 20000301

REACTIONS (23)
  - JAW DISORDER [None]
  - TREMOR [None]
  - BLOOD CHOLESTEROL INCREASED [None]
  - HERPES ZOSTER [None]
  - LIMB INJURY [None]
  - MUSCLE STRAIN [None]
  - PAIN [None]
  - ORAL INFECTION [None]
  - ORAL HERPES [None]
  - EPICONDYLITIS [None]
  - TOOTH DISORDER [None]
  - LIMB OPERATION [None]
  - ABSCESS [None]
  - WEIGHT DECREASED [None]
  - RHINORRHOEA [None]
  - OSTEONECROSIS OF JAW [None]
  - MENISCUS LESION [None]
  - EYE DISORDER [None]
  - ASTHMA [None]
  - FALL [None]
  - TRIGGER FINGER [None]
  - INTERVERTEBRAL DISC PROTRUSION [None]
  - EYE INJURY [None]
